FAERS Safety Report 10981895 (Version 3)
Quarter: 2015Q2

REPORT INFORMATION
  Report Type: Report from Study
  Country: FR (occurrence: FR)
  Receive Date: 20150402
  Receipt Date: 20150507
  Transmission Date: 20150821
  Serious: Yes (Hospitalization)
  Sender: FDA-Public Use
  Company Number: PHHO2015FR004897

PATIENT
  Age: 69 Year
  Sex: Male
  Weight: 84 kg

DRUGS (4)
  1. AFINITOR [Suspect]
     Active Substance: EVEROLIMUS
     Indication: CHOLANGIOCARCINOMA
     Dosage: 5 MG, UNK
     Route: 048
     Dates: start: 20150224, end: 20150323
  2. SORAFENIB [Suspect]
     Active Substance: SORAFENIB
     Indication: CHOLANGIOCARCINOMA
     Dosage: 200 MG, BID
     Route: 048
     Dates: start: 20150310, end: 20150323
  3. AFINITOR [Suspect]
     Active Substance: EVEROLIMUS
     Dosage: 5 MG, UNK
     Route: 048
     Dates: end: 20150402
  4. SORAFENIB [Suspect]
     Active Substance: SORAFENIB
     Dosage: 200 MG, BID
     Route: 048
     Dates: end: 20150402

REACTIONS (2)
  - Atrial fibrillation [Recovered/Resolved]
  - Liver abscess [Recovered/Resolved]

NARRATIVE: CASE EVENT DATE: 20150324
